FAERS Safety Report 23810155 (Version 1)
Quarter: 2024Q2

REPORT INFORMATION
  Report Type: Spontaneous
  Country: US (occurrence: US)
  Receive Date: 20240502
  Receipt Date: 20240502
  Transmission Date: 20240716
  Serious: Yes (Other)
  Sender: FDA-Public Use
  Company Number: US-CATALYST PHARMACEUTICALS, INC-US-CATA-24-00090

PATIENT
  Sex: Female
  Weight: 85.687 kg

DRUGS (21)
  1. FIRDAPSE [Suspect]
     Active Substance: AMIFAMPRIDINE PHOSPHATE
     Indication: Myasthenic syndrome
     Dosage: 15 MG A DAY, 5 MG 3X A DAY
     Route: 048
     Dates: start: 20210115, end: 2021
  2. FIRDAPSE [Suspect]
     Active Substance: AMIFAMPRIDINE PHOSPHATE
     Dosage: INCREASE BY 0.5 TABLET EVERY 3 DAYS UNTIL A MAX DOSE OF 2 TABLETS THREE TIMES A DAY IS REACHED
     Route: 048
     Dates: start: 2021, end: 2021
  3. FIRDAPSE [Suspect]
     Active Substance: AMIFAMPRIDINE PHOSPHATE
     Dosage: 60 MG A DAY, 20 MG 3X A DAY
     Route: 048
     Dates: start: 2021, end: 2021
  4. FIRDAPSE [Suspect]
     Active Substance: AMIFAMPRIDINE PHOSPHATE
     Dosage: 60 MG A DAY, 15 MG 4X A DAY
     Route: 048
     Dates: start: 20210211
  5. PROZAC [Concomitant]
     Active Substance: FLUOXETINE HYDROCHLORIDE
     Indication: Depression
     Dosage: 20 MG DAILY
     Route: 065
  6. BENICAR [Concomitant]
     Active Substance: OLMESARTAN MEDOXOMIL
     Indication: Hypertension
     Dosage: 20 MG DAILY
     Route: 065
  7. LANSOPRAZOLE [Concomitant]
     Active Substance: LANSOPRAZOLE
     Indication: Gastrooesophageal reflux disease
     Dosage: 30 MG DAILY
     Route: 065
  8. CALCIUM CARBONATE\CHOLECALCIFEROL [Concomitant]
     Active Substance: CALCIUM CARBONATE\CHOLECALCIFEROL
     Indication: Hypovitaminosis
     Dosage: 600-800 MG DAILY
     Route: 065
  9. VITAMINS [Concomitant]
     Active Substance: VITAMINS
     Indication: Hypovitaminosis
     Dosage: 1 TABLET DAILY
     Route: 065
  10. VITAMIN B12 [Concomitant]
     Active Substance: CYANOCOBALAMIN
     Indication: Hypovitaminosis
     Dosage: 3000 MCG DAILY
     Route: 065
  11. GAMMAGARD (IVIG) [Concomitant]
     Indication: Myasthenic syndrome
     Dosage: 5 G PER 50 ML EVERY MONTH
     Route: 065
  12. MINERALS\VITAMINS [Concomitant]
     Active Substance: MINERALS\VITAMINS
     Indication: Hypovitaminosis
     Dosage: 2 TABLETS DAILY
     Route: 065
  13. SENNA [Concomitant]
     Active Substance: SENNA LEAF\SENNOSIDES\SENNOSIDES A AND B
     Indication: Constipation
     Dosage: 8.6 MG AS NEEDED
     Route: 065
  14. CO-LACE [Concomitant]
     Indication: Constipation
     Dosage: 1000 MG AS NEEDED
     Route: 065
  15. PREDNISONE [Concomitant]
     Active Substance: PREDNISONE
     Indication: Myasthenic syndrome
     Dosage: 5 MG DAILY
     Route: 065
  16. CELLCEPT [Concomitant]
     Active Substance: MYCOPHENOLATE MOFETIL
     Indication: Myasthenic syndrome
     Dosage: 360 MG TWICE A DAY
     Route: 065
  17. PRAVASTATIN SODIUM [Concomitant]
     Active Substance: PRAVASTATIN SODIUM
     Indication: Dyslipidaemia
     Dosage: 10 MG DAILY
     Route: 065
  18. ANTI-ACID [Concomitant]
     Indication: Abdominal discomfort
     Dosage: 500 MG AS NEEDED
     Route: 065
  19. MESTINON [Concomitant]
     Active Substance: PYRIDOSTIGMINE BROMIDE
     Indication: Myasthenic syndrome
     Dosage: 420 MG DAILY
     Route: 065
  20. ASPIRIN [Concomitant]
     Active Substance: ASPIRIN
     Indication: Thrombosis prophylaxis
     Dosage: 81 MG
     Route: 065
  21. OMEGA 3 [Concomitant]
     Active Substance: CAPSAICIN
     Indication: Dyslipidaemia
     Dosage: 1280 MG DAILY
     Route: 065

REACTIONS (1)
  - Sjogren^s syndrome [Not Recovered/Not Resolved]
